FAERS Safety Report 7559258-2 (Version None)
Quarter: 2011Q2

REPORT INFORMATION
  Report Type: 
  Country: None (occurrence: None)
  Receive Date: 20110621
  Receipt Date: 20110610
  Transmission Date: 20111010
  Serious: Yes (Hospitalization)
  Sender: FDA-Public Use
  Company Number: JP-PFIZER INC-2011125141

PATIENT
  Age: 83 Year
  Sex: Male
  Weight: 71.6 kg

DRUGS (6)
  1. DILTIAZEM HCL [Concomitant]
     Indication: HYPERTENSION
     Dosage: UNK
  2. ARICEPT [Concomitant]
     Indication: DEMENTIA ALZHEIMER'S TYPE
     Dosage: UNK
  3. WARFARIN [Concomitant]
     Indication: ATRIAL FIBRILLATION
     Dosage: UNK
     Route: 048
  4. ATORVASTATIN CALCIUM [Suspect]
     Indication: HYPERCHOLESTEROLAEMIA
     Dosage: 10 MG, 1X/DAY
     Route: 048
     Dates: start: 20101105
  5. LOSARTAN POTASSIUM [Concomitant]
     Indication: HYPERTENSION
     Dosage: UNK
     Route: 048
  6. URINORM [Concomitant]
     Indication: HYPERURICAEMIA
     Dosage: UNK
     Route: 048

REACTIONS (1)
  - CEREBRAL INFARCTION [None]
